FAERS Safety Report 4826738-X (Version None)
Quarter: 2005Q4

REPORT INFORMATION
  Report Type: 
  Country: None (occurrence: None)
  Receive Date: 20051114
  Receipt Date: 20030406
  Transmission Date: 20060501
  Serious: Yes (Death)
  Sender: FDA-Public Use
  Company Number: US-JNJFOC-20051101184

PATIENT
  Sex: Male

DRUGS (2)
  1. REOPRO [Suspect]
     Indication: ARTERIAL STENT INSERTION
  2. HEPARIN [Concomitant]
     Indication: STENT PLACEMENT

REACTIONS (3)
  - CAROTID ARTERY STENOSIS [None]
  - OFF LABEL USE [None]
  - VASCULAR PROCEDURE COMPLICATION [None]
